FAERS Safety Report 13443777 (Version 4)
Quarter: 2017Q4

REPORT INFORMATION
  Report Type: Spontaneous
  Country: JP (occurrence: JP)
  Receive Date: 20170414
  Receipt Date: 20171010
  Transmission Date: 20180320
  Serious: Yes (Hospitalization, Other)
  Sender: FDA-Public Use
  Company Number: JP-ROCHE-1921180

PATIENT
  Age: 49 Year
  Sex: Female

DRUGS (1)
  1. ACTEMRA [Suspect]
     Active Substance: TOCILIZUMAB
     Indication: RHEUMATOID ARTHRITIS
     Route: 058
     Dates: start: 201308, end: 201601

REACTIONS (3)
  - Hypocomplementaemia [Unknown]
  - Nephrotic syndrome [Recovering/Resolving]
  - Glomerulonephritis membranoproliferative [Unknown]

NARRATIVE: CASE EVENT DATE: 201609
